FAERS Safety Report 5095423-4 (Version None)
Quarter: 2006Q3

REPORT INFORMATION
  Report Type: 
  Country: None (occurrence: None)
  Receive Date: 20060830
  Receipt Date: 20060824
  Transmission Date: 20061208
  Serious: Yes (Hospitalization)
  Sender: FDA-Public Use
  Company Number: 233299K06USA

PATIENT
  Age: 47 Year
  Sex: Female
  Weight: 53.5244 kg

DRUGS (5)
  1. REBIF [Suspect]
     Indication: MULTIPLE SCLEROSIS
     Dosage: SEE IMAGE
     Dates: start: 20030101, end: 20050101
  2. REBIF [Suspect]
     Indication: MULTIPLE SCLEROSIS
     Dosage: SEE IMAGE
     Dates: start: 20050101, end: 20060515
  3. ATENOLOL [Concomitant]
  4. XANAX [Concomitant]
  5. TYLENOL WITH CODEINE #3 (PANADEINE CO) [Concomitant]

REACTIONS (12)
  - ANOREXIA [None]
  - CONVULSION [None]
  - DIZZINESS [None]
  - FATIGUE [None]
  - HYPOAESTHESIA [None]
  - LABYRINTHITIS [None]
  - NAUSEA [None]
  - TINNITUS [None]
  - TOOTH INFECTION [None]
  - VERTIGO [None]
  - VOMITING [None]
  - WEIGHT DECREASED [None]
